FAERS Safety Report 6961058-9 (Version None)
Quarter: 2010Q3

REPORT INFORMATION
  Report Type: 
  Country: None (occurrence: None)
  Receive Date: 20100901
  Receipt Date: 20100823
  Transmission Date: 20110219
  Serious: Yes (Other)
  Sender: FDA-Public Use
  Company Number: US-B.I. PHARMACEUTICALS,INC./RIDGEFIELD-2010-BP-09564BP

PATIENT
  Age: 43 Year
  Sex: Female
  Weight: 124.3 kg

DRUGS (22)
  1. MOBIC [Suspect]
     Indication: PAIN
     Dosage: 30 MG
     Route: 048
  2. LYRICA [Suspect]
     Indication: FIBROMYALGIA
     Dosage: 450 MG
     Route: 048
  3. LISINOPRIL [Suspect]
     Indication: BLOOD PRESSURE
     Dosage: 10 MG
     Route: 048
  4. FLUTICASONE PROPIONATE [Suspect]
     Indication: NASAL SEPTUM DEVIATION
     Dates: start: 20100101
  5. SIMVASTATIN [Suspect]
     Indication: BLOOD CHOLESTEROL INCREASED
     Dosage: 40 MG
     Route: 048
  6. CETIRIZINE HCL [Suspect]
     Indication: HYPERSENSITIVITY
     Dosage: 10 MG
     Route: 048
  7. ASPIRIN [Suspect]
     Indication: CARDIAC DISORDER
     Dosage: 81 MG
     Route: 048
  8. LEVOTHYROXINE [Suspect]
     Indication: THYROID DISORDER
     Dosage: 50 MCG
     Route: 048
  9. TEGRETOL [Suspect]
     Indication: MOOD SWINGS
     Route: 048
  10. TEGRETOL [Suspect]
     Indication: PERSONALITY DISORDER
  11. PROVIGIL [Suspect]
     Indication: SLEEP APNOEA SYNDROME
     Dosage: 200 MG
     Route: 048
  12. PROPRANOLOL [Suspect]
     Indication: BLOOD PRESSURE INCREASED
     Dosage: 40 MG
     Route: 048
  13. METHOCARBAMOL [Suspect]
     Indication: PAIN
     Dosage: 1000 MG
     Route: 048
  14. BACLOFEN [Suspect]
     Indication: RESTLESS LEGS SYNDROME
     Dosage: 60 MG
     Route: 048
  15. METHADOSE [Suspect]
     Indication: PAIN
     Dosage: 50 MG
     Route: 048
  16. CYMBALTA [Suspect]
     Indication: DEPRESSION
     Dosage: 120 MG
     Route: 048
  17. OMEPRAZOLE [Suspect]
     Indication: GASTROOESOPHAGEAL REFLUX DISEASE
     Dosage: 40 MG
     Route: 048
  18. LIDODERM [Suspect]
     Indication: MYALGIA
  19. INSULIN DETEMIR [Suspect]
     Indication: DIABETES MELLITUS
     Route: 058
  20. MIRALAX [Suspect]
     Indication: CONSTIPATION
     Dosage: 17 G
     Route: 048
  21. FISH OIL [Suspect]
  22. VITAMIN E [Suspect]

REACTIONS (2)
  - CONVULSION [None]
  - FIBROMYALGIA [None]
